FAERS Safety Report 14017522 (Version 4)
Quarter: 2018Q1

REPORT INFORMATION
  Report Type: Spontaneous
  Country: US (occurrence: US)
  Receive Date: 20170927
  Receipt Date: 20180124
  Transmission Date: 20180508
  Serious: Yes (Other)
  Sender: FDA-Public Use
  Company Number: US-GLAXOSMITHKLINE-US2017GSK148794

PATIENT
  Age: 43 Year
  Sex: Female

DRUGS (12)
  1. AMLODIPINE [Concomitant]
     Active Substance: AMLODIPINE BESYLATE
  2. VALSARTAN. [Concomitant]
     Active Substance: VALSARTAN
  3. DRY EYE OMEGA BENEFITS [Concomitant]
  4. BENLYSTA [Suspect]
     Active Substance: BELIMUMAB
     Indication: SYSTEMIC LUPUS ERYTHEMATOSUS
     Dosage: UNK UNK, CYC
     Route: 050
     Dates: start: 20160802
  5. BENLYSTA [Suspect]
     Active Substance: BELIMUMAB
     Dosage: UNK
     Route: 042
  6. VITAMIN B12 [Concomitant]
     Active Substance: CYANOCOBALAMIN
  7. VITAMIN D [Concomitant]
     Active Substance: CHOLECALCIFEROL
  8. PREDNISONE. [Concomitant]
     Active Substance: PREDNISONE
  9. LEFLUNOMIDE. [Concomitant]
     Active Substance: LEFLUNOMIDE
  10. BENLYSTA [Suspect]
     Active Substance: BELIMUMAB
     Dosage: 640 MG, CYC
     Route: 042
  11. FLEXERIL [Concomitant]
     Active Substance: CYCLOBENZAPRINE HYDROCHLORIDE
  12. GABAPENTIN. [Concomitant]
     Active Substance: GABAPENTIN

REACTIONS (21)
  - Focal dyscognitive seizures [Unknown]
  - Confusional state [Not Recovered/Not Resolved]
  - Bronchitis [Recovering/Resolving]
  - Therapeutic response unexpected [Unknown]
  - Impaired driving ability [Not Recovered/Not Resolved]
  - Raynaud^s phenomenon [Recovering/Resolving]
  - Skin discolouration [Recovering/Resolving]
  - Vitamin B12 decreased [Unknown]
  - Speech disorder [Not Recovered/Not Resolved]
  - Disorientation [Unknown]
  - Memory impairment [Not Recovered/Not Resolved]
  - Oropharyngeal pain [Recovering/Resolving]
  - Central nervous system lupus [Not Recovered/Not Resolved]
  - Fine motor skill dysfunction [Not Recovered/Not Resolved]
  - Ill-defined disorder [Not Recovered/Not Resolved]
  - Rash [Recovered/Resolved]
  - Nasal congestion [Recovering/Resolving]
  - Condition aggravated [Unknown]
  - Rhinorrhoea [Recovering/Resolving]
  - Cough [Recovering/Resolving]
  - Drug ineffective [Unknown]

NARRATIVE: CASE EVENT DATE: 201610
